FAERS Safety Report 6214164-0 (Version None)
Quarter: 2009Q2

REPORT INFORMATION
  Report Type: 
  Country: None (occurrence: None)
  Receive Date: 20090604
  Receipt Date: 20090602
  Transmission Date: 20091009
  Serious: Yes (Other)
  Sender: FDA-Public Use
  Company Number: JP-BRISTOL-MYERS SQUIBB COMPANY-14645824

PATIENT
  Age: 63 Year
  Sex: Male

DRUGS (2)
  1. TAXOL [Suspect]
     Indication: NON-SMALL CELL LUNG CANCER
     Dosage: SINCE NOV2007 RECEIVED RADIO CHEMOTHERAPY WITH CARBOPLATIN AND PACLITAXEL
     Route: 041
     Dates: start: 20080101, end: 20080101
  2. PARAPLATIN [Suspect]
     Indication: NON-SMALL CELL LUNG CANCER
     Dosage: SINCE NOV2007 RECEIVED RADIO CHEMOTHERAPY WITH CARBOPLATIN AND PACLITAXEL
     Route: 041
     Dates: start: 20080101, end: 20080101

REACTIONS (2)
  - INTERSTITIAL LUNG DISEASE [None]
  - MUCORMYCOSIS [None]
